FAERS Safety Report 22585687 (Version 1)
Quarter: 2023Q2

REPORT INFORMATION
  Report Type: Spontaneous
  Country: FR (occurrence: FR)
  Receive Date: 20230610
  Receipt Date: 20230610
  Transmission Date: 20230721
  Serious: Yes (Hospitalization)
  Sender: FDA-Public Use
  Company Number: None

PATIENT
  Age: 28 Year
  Sex: Male

DRUGS (4)
  1. PREDNISOLONE [Suspect]
     Active Substance: PREDNISOLONE
     Indication: Rhinitis
     Dosage: 60 MG, QD
     Route: 048
     Dates: start: 20230216, end: 20230219
  2. ENTYVIO [Suspect]
     Active Substance: VEDOLIZUMAB
     Indication: Colitis ulcerative
     Dosage: 108 MG, CYCLIC (108 MG EN IV LES 13 DEC 2022 ET 03 JAN 2023 ET EN SOUS CUTANEE LES 31 JAN 2023 ET 14
     Route: 042
     Dates: start: 20221213, end: 20230103
  3. ENTYVIO [Suspect]
     Active Substance: VEDOLIZUMAB
     Dosage: 108 MG, CYCLIC
     Route: 058
     Dates: start: 20230131, end: 20230214
  4. TIXOCORTOL PIVALATE [Suspect]
     Active Substance: TIXOCORTOL PIVALATE
     Indication: Rhinitis
     Dosage: UNK
     Route: 045
     Dates: start: 20230216, end: 20230219

REACTIONS (1)
  - Cellulitis [Recovered/Resolved]

NARRATIVE: CASE EVENT DATE: 20230219
